FAERS Safety Report 9536212 (Version 1)
Quarter: 2013Q2

REPORT INFORMATION
  Report Type: Spontaneous
  Country: US (occurrence: None)
  Receive Date: 20130403
  Receipt Date: 20130403
  Transmission Date: 20140414
  Serious: Yes (Other)
  Sender: FDA-Public Use
  Company Number: SP06443

PATIENT
  Age: 34 Year
  Sex: Male
  Weight: 104.78 kg

DRUGS (1)
  1. OSMOPREP [Suspect]
     Indication: LAXATIVE SUPPORTIVE CARE
     Route: 048
     Dates: start: 20130224, end: 20130224

REACTIONS (1)
  - Throat tightness [None]
